FAERS Safety Report 14719548 (Version 7)
Quarter: 2020Q1

REPORT INFORMATION
  Report Type: Spontaneous
  Country: US (occurrence: US)
  Receive Date: 20180405
  Receipt Date: 20200309
  Transmission Date: 20200409
  Serious: Yes (Other)
  Sender: FDA-Public Use
  Company Number: US-PFIZER INC-2018139665

PATIENT
  Age: 45 Year
  Sex: Female
  Weight: 110.6 kg

DRUGS (4)
  1. LYRICA [Suspect]
     Active Substance: PREGABALIN
     Indication: FIBROMYALGIA
     Dosage: 400 MG, 2X/DAY
     Route: 048
  2. LYRICA [Suspect]
     Active Substance: PREGABALIN
     Indication: MUSCLE STRAIN
     Dosage: 200 MG, 2X/DAY (1 CAPSULE 1 TO 3 HOURS BEFORE BEDTIME, TWICE A DAY)
     Route: 048
  3. LYRICA [Suspect]
     Active Substance: PREGABALIN
     Indication: FATIGUE
     Dosage: UNK, 1X/DAY
     Route: 048
  4. LYRICA [Suspect]
     Active Substance: PREGABALIN
     Dosage: 200 MG, 1X/DAY
     Route: 048

REACTIONS (7)
  - Depression [Unknown]
  - Accidental overdose [Unknown]
  - Dysarthria [Recovered/Resolved]
  - Dissociation [Unknown]
  - Drug dependence [Unknown]
  - Euphoric mood [Recovered/Resolved]
  - Pain [Unknown]
